FAERS Safety Report 7509040-7 (Version None)
Quarter: 2011Q2

REPORT INFORMATION
  Report Type: 
  Country: None (occurrence: None)
  Receive Date: 20110527
  Receipt Date: 20110524
  Transmission Date: 20111010
  Serious: Yes (Other)
  Sender: FDA-Public Use
  Company Number: US-PFIZER INC-2011112483

PATIENT
  Sex: Male

DRUGS (1)
  1. ZMAX [Suspect]
     Indication: PNEUMONIA
     Dosage: UNK
     Route: 048

REACTIONS (2)
  - THIRST [None]
  - POLYURIA [None]
